FAERS Safety Report 5992928-6 (Version None)
Quarter: 2008Q4

REPORT INFORMATION
  Report Type: 
  Country: None (occurrence: None)
  Receive Date: 20081212
  Receipt Date: 20081205
  Transmission Date: 20090506
  Serious: Yes (Other)
  Sender: FDA-Public Use
  Company Number: US-ALLERGAN-0814264US

PATIENT
  Sex: Female

DRUGS (7)
  1. SANCTURA XR [Suspect]
     Indication: HYPERTONIC BLADDER
     Dosage: UNK, UNKNOWN
     Route: 048
     Dates: start: 20081022, end: 20081101
  2. AMLODIPINE [Concomitant]
     Indication: BLOOD PRESSURE
  3. SYNTHROID [Concomitant]
  4. OMEPRAZOLE [Concomitant]
     Indication: GASTROOESOPHAGEAL REFLUX DISEASE
     Dosage: UNK, BID
  5. OMEPRAZOLE [Concomitant]
     Dosage: UNK, QD
  6. ADVAIR HFA [Concomitant]
  7. TRAMADOL HCL [Concomitant]
     Indication: PAIN

REACTIONS (2)
  - AMNESIA [None]
  - CYSTITIS [None]
